FAERS Safety Report 13663340 (Version 2)
Quarter: 2017Q2

REPORT INFORMATION
  Report Type: Spontaneous
  Country: GB (occurrence: GB)
  Receive Date: 20170619
  Receipt Date: 20170619
  Transmission Date: 20170830
  Serious: Yes (Disabling, Other)
  Sender: FDA-Public Use
  Company Number: GB-CIPLA LTD.-2017GB10546

PATIENT

DRUGS (2)
  1. SERTRALINE [Suspect]
     Active Substance: SERTRALINE HYDROCHLORIDE
     Indication: ANXIETY
     Dosage: 100 MG, QD
     Route: 048
     Dates: start: 2012
  2. DESUNIN [Interacting]
     Active Substance: CHOLECALCIFEROL
     Indication: FATIGUE
     Dosage: 800
     Route: 048
     Dates: start: 20160720, end: 20161020

REACTIONS (4)
  - Fatigue [Not Recovered/Not Resolved]
  - Listless [Not Recovered/Not Resolved]
  - Inhibitory drug interaction [Unknown]
  - Suicidal ideation [Not Recovered/Not Resolved]

NARRATIVE: CASE EVENT DATE: 20160825
